FAERS Safety Report 14410490 (Version 1)
Quarter: 2018Q1

REPORT INFORMATION
  Report Type: Report from Study
  Country: US (occurrence: US)
  Receive Date: 20180119
  Receipt Date: 20180119
  Transmission Date: 20180509
  Serious: Yes (Other)
  Sender: FDA-Public Use
  Company Number: US-TAIHO ONCOLOGY INC-EU-2018-00027

PATIENT
  Sex: Female

DRUGS (2)
  1. LONSURF [Suspect]
     Active Substance: TIPIRACIL HYDROCHLORIDE\TRIFLURIDINE
     Indication: COLORECTAL CANCER
     Dosage: 3 PILLS
     Route: 048
     Dates: start: 2017, end: 2017
  2. LONSURF [Suspect]
     Active Substance: TIPIRACIL HYDROCHLORIDE\TRIFLURIDINE
     Indication: COLORECTAL CANCER
     Dosage: 2 PILLS
     Route: 048
     Dates: start: 2017

REACTIONS (2)
  - Fatigue [Unknown]
  - Blood iron decreased [Unknown]

NARRATIVE: CASE EVENT DATE: 2017
